FAERS Safety Report 8852087 (Version 1)
Quarter: 2012Q4

REPORT INFORMATION
  Report Type: Spontaneous
  Country: FR (occurrence: None)
  Receive Date: 20121017
  Receipt Date: 20121017
  Transmission Date: 20130627
  Serious: Yes (Hospitalization)
  Sender: FDA-Public Use
  Company Number: B0837778A

PATIENT
  Age: 57 Year
  Sex: Male

DRUGS (6)
  1. FLUTICASONE PROPIONATE [Suspect]
     Indication: OBSTRUCTIVE AIRWAYS DISORDER
     Route: 055
  2. TRIAMCINOLONE [Suspect]
     Indication: OBSTRUCTIVE AIRWAYS DISORDER
  3. RITONAVIR [Suspect]
     Indication: PRODUCT USED FOR UNKNOWN INDICATION
  4. LOPINAVIR [Concomitant]
  5. SAQUINAVIR [Concomitant]
  6. ABACAVIR SULPHATE [Concomitant]

REACTIONS (5)
  - Hepatitis B [None]
  - Treatment failure [None]
  - Treatment noncompliance [None]
  - Drug interaction [None]
  - Viral mutation identified [None]
